FAERS Safety Report 9645688 (Version 1)
Quarter: 2013Q4

REPORT INFORMATION
  Report Type: Spontaneous
  Country: DE (occurrence: DE)
  Receive Date: 20131025
  Receipt Date: 20131025
  Transmission Date: 20140711
  Serious: Yes (Congenital Anomaly, Other)
  Sender: FDA-Public Use
  Company Number: DE-ABBVIE-13P-062-1161796-00

PATIENT
  Sex: Male

DRUGS (2)
  1. ERGENYL CHRONO [Suspect]
     Indication: MATERNAL EXPOSURE TIMING UNSPECIFIED
     Route: 064
  2. RIVOTRIL [Suspect]
     Indication: MATERNAL EXPOSURE TIMING UNSPECIFIED
     Route: 064

REACTIONS (15)
  - Feeding disorder neonatal [Recovered/Resolved]
  - Renal fusion anomaly [Not Recovered/Not Resolved]
  - Foetal exposure during pregnancy [Unknown]
  - Gastrointestinal disorder [Unknown]
  - Hepatosplenomegaly [Unknown]
  - Prenatal screening test abnormal [Unknown]
  - Cerebral ventricle dilatation [Unknown]
  - Patent ductus arteriosus [Recovered/Resolved]
  - Atrial septal defect [Not Recovered/Not Resolved]
  - Hypospadias [Not Recovered/Not Resolved]
  - Cerebral ventricle dilatation [Unknown]
  - Cerebral ventricle dilatation [Unknown]
  - Hypotonia neonatal [Recovered/Resolved]
  - Somnolence [Unknown]
  - Cerebral ventricle dilatation [Unknown]
